FAERS Safety Report 5911719-5 (Version None)
Quarter: 2008Q4

REPORT INFORMATION
  Report Type: 
  Country: None (occurrence: None)
  Receive Date: 20081008
  Receipt Date: 20080930
  Transmission Date: 20090506
  Serious: Yes (Hospitalization, Other)
  Sender: FDA-Public Use
  Company Number: DE-RANBAXY-2008RR-18409

PATIENT
  Age: 50 Year
  Sex: Female

DRUGS (1)
  1. CLINDAMYCIN HYDROCHLORIDE [Suspect]
     Indication: OSTEITIS
     Dosage: 600 MG, UNK
     Route: 048
     Dates: start: 20080801

REACTIONS (3)
  - ANGIOEDEMA [None]
  - DIARRHOEA [None]
  - RASH [None]
